FAERS Safety Report 9405997 (Version 5)
Quarter: 2013Q4

REPORT INFORMATION
  Report Type: Spontaneous
  Country: US (occurrence: US)
  Receive Date: 20130717
  Receipt Date: 20131211
  Transmission Date: 20140711
  Serious: Yes (Other)
  Sender: FDA-Public Use
  Company Number: US-009507513-1306USA011903

PATIENT
  Sex: Male

DRUGS (4)
  1. REBETOL [Suspect]
     Indication: CHRONIC HEPATITIS C
     Dosage: 1000 MG, QD (DIVIDED DOSE)
     Route: 048
     Dates: start: 20130425, end: 2013
  2. REBETOL [Suspect]
     Dosage: 600 MG, QD (DIVIDED DOSE)
     Route: 048
     Dates: start: 2013
  3. VICTRELIS [Suspect]
     Indication: CHRONIC HEPATITIS C
     Dosage: UNK
     Route: 048
     Dates: start: 20130525
  4. PEGASYS [Suspect]
     Indication: CHRONIC HEPATITIS C
     Dosage: 180 MICROGRAM, QW
     Route: 065
     Dates: start: 20130425

REACTIONS (18)
  - Injection site mass [Unknown]
  - Excoriation [Unknown]
  - Full blood count decreased [Recovering/Resolving]
  - Butterfly rash [Unknown]
  - Dandruff [Unknown]
  - Contusion [Unknown]
  - Hypophagia [Unknown]
  - Impaired healing [Unknown]
  - Dysgeusia [Unknown]
  - Alopecia [Unknown]
  - Decreased appetite [Unknown]
  - Fatigue [Unknown]
  - Oropharyngeal pain [Unknown]
  - Hypersensitivity [Unknown]
  - Alopecia [Unknown]
  - Lethargy [Unknown]
  - Dizziness [Unknown]
  - Dizziness [Unknown]
